FAERS Safety Report 19156122 (Version 1)
Quarter: 2021Q2

REPORT INFORMATION
  Report Type: Spontaneous
  Country: CN (occurrence: CN)
  Receive Date: 20210420
  Receipt Date: 20210420
  Transmission Date: 20210717
  Serious: Yes (Other)
  Sender: FDA-Public Use
  Company Number: CN-ROCHE-2811073

PATIENT
  Age: 79 Year
  Sex: Male

DRUGS (13)
  1. LENALIDOMIDE [Suspect]
     Active Substance: LENALIDOMIDE
     Route: 065
     Dates: start: 20210107
  2. IBRUTINIB [Suspect]
     Active Substance: IBRUTINIB
     Indication: DIFFUSE LARGE B-CELL LYMPHOMA
     Dosage: FOR 6 DAYS
     Route: 065
     Dates: start: 20201118
  3. MABTHERA [Suspect]
     Active Substance: RITUXIMAB
     Indication: DIFFUSE LARGE B-CELL LYMPHOMA
     Route: 065
     Dates: start: 20201118
  4. LENALIDOMIDE [Suspect]
     Active Substance: LENALIDOMIDE
     Route: 065
     Dates: start: 20201218
  5. IBRUTINIB [Suspect]
     Active Substance: IBRUTINIB
     Dosage: FOR 5 DAYS
     Route: 065
     Dates: start: 20201218
  6. IBRUTINIB [Suspect]
     Active Substance: IBRUTINIB
     Dosage: FOR 5 DAYS
     Route: 065
     Dates: start: 20210107
  7. MABTHERA [Suspect]
     Active Substance: RITUXIMAB
     Route: 065
     Dates: start: 20210107
  8. LENALIDOMIDE [Suspect]
     Active Substance: LENALIDOMIDE
     Indication: DIFFUSE LARGE B-CELL LYMPHOMA
     Route: 065
     Dates: start: 20201118
  9. EUTHYROX [Concomitant]
     Active Substance: LEVOTHYROXINE SODIUM
     Route: 048
  10. LENALIDOMIDE [Suspect]
     Active Substance: LENALIDOMIDE
     Route: 065
     Dates: start: 20210129
  11. MABTHERA [Suspect]
     Active Substance: RITUXIMAB
     Route: 065
     Dates: start: 20201218
  12. IBRUTINIB [Suspect]
     Active Substance: IBRUTINIB
     Dosage: FOR 10 DAYS
     Route: 065
     Dates: start: 20210129
  13. MABTHERA [Suspect]
     Active Substance: RITUXIMAB
     Route: 065
     Dates: start: 20210129

REACTIONS (5)
  - Ventricular extrasystoles [Unknown]
  - Palpitations [Unknown]
  - Haemoglobin decreased [Unknown]
  - Urinary retention [Unknown]
  - Platelet count decreased [Unknown]
